FAERS Safety Report 9651998 (Version 1)
Quarter: 2013Q4

REPORT INFORMATION
  Report Type: Spontaneous
  Country: FR (occurrence: None)
  Receive Date: 20131025
  Receipt Date: 20131025
  Transmission Date: 20140711
  Serious: Yes (Hospitalization)
  Sender: FDA-Public Use
  Company Number: SYM-2013-11854

PATIENT
  Age: 43 Year
  Sex: Female

DRUGS (2)
  1. FLAGYL [Suspect]
     Route: 048
     Dates: start: 20130223, end: 20130223
  2. AETOXISCLEROL [Suspect]
     Route: 042
     Dates: start: 20130313, end: 20130313

REACTIONS (1)
  - Immune thrombocytopenic purpura [None]
